FAERS Safety Report 4855689-X (Version None)
Quarter: 2005Q4

REPORT INFORMATION
  Report Type: 
  Country: None (occurrence: None)
  Receive Date: 20051216
  Receipt Date: 20030805
  Transmission Date: 20060501
  Serious: Yes (Hospitalization)
  Sender: FDA-Public Use
  Company Number: BE-ROCHE-344006

PATIENT
  Age: 57 Year
  Sex: Female

DRUGS (3)
  1. PEG-INTERFERON ALFA 2A (RO 25-8310) [Suspect]
     Route: 058
     Dates: start: 20030402, end: 20030422
  2. PEG-INTERFERON ALFA 2A (RO 25-8310) [Suspect]
     Route: 058
     Dates: start: 20030423, end: 20030528
  3. RIBAVIRIN [Suspect]
     Route: 048
     Dates: start: 20030402, end: 20030528

REACTIONS (1)
  - PANCYTOPENIA [None]
